FAERS Safety Report 6561600-6 (Version None)
Quarter: 2010Q1

REPORT INFORMATION
  Report Type: 
  Country: None (occurrence: None)
  Receive Date: 20100130
  Receipt Date: 20091025
  Transmission Date: 20100710
  Serious: No
  Sender: FDA-Public Use
  Company Number: US-ABBOTT-09P-163-0604676-00

PATIENT
  Sex: Male
  Weight: 113.5 kg

DRUGS (1)
  1. HUMIRA [Suspect]
     Indication: PSORIASIS
     Dates: start: 20071023

REACTIONS (4)
  - CONJUNCTIVITIS INFECTIVE [None]
  - ERYTHEMA [None]
  - PSORIASIS [None]
  - SKIN WARM [None]
